FAERS Safety Report 23739548 (Version 6)
Quarter: 2025Q1

REPORT INFORMATION
  Report Type: Spontaneous
  Country: CA (occurrence: CA)
  Receive Date: 20240413
  Receipt Date: 20250317
  Transmission Date: 20250409
  Serious: Yes (Hospitalization, Other)
  Sender: BOEHRINGER INGELHEIM
  Company Number: CA-BoehringerIngelheim-2024-BI-021541

PATIENT
  Age: 65 Year
  Sex: Female

DRUGS (35)
  1. PRAMIPEXOLE [Suspect]
     Active Substance: PRAMIPEXOLE
     Indication: Depression
  2. APIXABAN [Suspect]
     Active Substance: APIXABAN
     Indication: Product used for unknown indication
  3. PAROXETINE HYDROCHLORIDE [Suspect]
     Active Substance: PAROXETINE HYDROCHLORIDE
     Indication: Depression
  4. ESCITALOPRAM [Suspect]
     Active Substance: ESCITALOPRAM OXALATE
     Indication: Depression
  5. FLUOXETINE [Suspect]
     Active Substance: FLUOXETINE HYDROCHLORIDE
     Indication: Depression
  6. FLUVOXAMINE [Suspect]
     Active Substance: FLUVOXAMINE
     Indication: Depression
  7. GABAPENTIN [Suspect]
     Active Substance: GABAPENTIN
     Indication: Depression
  8. LURASIDONE HYDROCHLORIDE [Suspect]
     Active Substance: LURASIDONE HYDROCHLORIDE
     Indication: Product used for unknown indication
  9. LURASIDONE HYDROCHLORIDE [Suspect]
     Active Substance: LURASIDONE HYDROCHLORIDE
  10. MIRTAZAPINE [Suspect]
     Active Substance: MIRTAZAPINE
     Indication: Depression
  11. OLANZAPINE [Suspect]
     Active Substance: OLANZAPINE
     Indication: Depression
  12. QUETIAPINE [Suspect]
     Active Substance: QUETIAPINE
     Indication: Depression
  13. RISPERIDONE [Suspect]
     Active Substance: RISPERIDONE
     Indication: Depression
  14. VENLAFAXINE HYDROCHLORIDE [Suspect]
     Active Substance: VENLAFAXINE HYDROCHLORIDE
     Indication: Depression
  15. ZOLPIDEM [Suspect]
     Active Substance: ZOLPIDEM TARTRATE
     Indication: Depression
  16. ZOPICLONE [Suspect]
     Active Substance: ZOPICLONE
     Indication: Depression
  17. LORAZEPAM [Suspect]
     Active Substance: LORAZEPAM
     Indication: Depression
  18. DAYVIGO [Suspect]
     Active Substance: LEMBOREXANT
     Indication: Depression
  19. REXULTI [Suspect]
     Active Substance: BREXPIPRAZOLE
     Indication: Depression
  20. BUPROPION [Suspect]
     Active Substance: BUPROPION
     Indication: Depression
  21. BUPROPION [Suspect]
     Active Substance: BUPROPION
  22. BUPROPION [Suspect]
     Active Substance: BUPROPION
  23. BUPROPION [Suspect]
     Active Substance: BUPROPION
  24. BREXPIPRAZOLE [Suspect]
     Active Substance: BREXPIPRAZOLE
     Indication: Depression
  25. CANNABIS SATIVA FLOWERING TOP [Suspect]
     Active Substance: CANNABIS SATIVA FLOWERING TOP
     Indication: Insomnia
  26. CLOMIPRAMINE [Suspect]
     Active Substance: CLOMIPRAMINE
     Indication: Depression
  27. LEMBOREXANT [Suspect]
     Active Substance: LEMBOREXANT
     Indication: Depression
  28. VORTIOXETINE [Suspect]
     Active Substance: VORTIOXETINE
     Indication: Depression
  29. VORTIOXETINE HYDROBROMIDE [Suspect]
     Active Substance: VORTIOXETINE HYDROBROMIDE
     Indication: Product used for unknown indication
  30. LEVOMEPROMAZINE [Suspect]
     Active Substance: LEVOMEPROMAZINE
     Indication: Depression
  31. PAROXETINE [Suspect]
     Active Substance: PAROXETINE
     Indication: Depression
  32. LAMOTRIGINE [Suspect]
     Active Substance: LAMOTRIGINE
     Indication: Product used for unknown indication
  33. LEVOMEPROMAZINE [Suspect]
     Active Substance: LEVOMEPROMAZINE
     Indication: Depression
  34. PANTOPRAZOLE [Concomitant]
     Active Substance: PANTOPRAZOLE
     Indication: Product used for unknown indication
  35. PANTOPRAZOLE [Concomitant]
     Active Substance: PANTOPRAZOLE

REACTIONS (6)
  - Adverse drug reaction [Unknown]
  - Condition aggravated [Recovered/Resolved]
  - Suicidal ideation [Recovered/Resolved]
  - Suicide attempt [Recovered/Resolved]
  - Drug ineffective [Recovered/Resolved]
  - Off label use [Recovered/Resolved]
